FAERS Safety Report 8320505-0 (Version None)
Quarter: 2012Q2

REPORT INFORMATION
  Report Type: 
  Country: None (occurrence: None)
  Receive Date: 20120427
  Receipt Date: 20120427
  Transmission Date: 20120825
  Serious: Yes (Life-Threatening)
  Sender: FDA-Public Use
  Company Number: None

PATIENT
  Age: 11 Year
  Sex: Female
  Weight: 39.008 kg

DRUGS (2)
  1. INTUNIV [Concomitant]
  2. INTUNIV [Suspect]
     Indication: ATTENTION DEFICIT/HYPERACTIVITY DISORDER
     Dosage: 4 MG
     Route: 048
     Dates: start: 20120416, end: 20120422

REACTIONS (4)
  - BRADYCARDIA [None]
  - HYPOTENSION [None]
  - CONFUSIONAL STATE [None]
  - ASTHENIA [None]
